FAERS Safety Report 5970496-2 (Version None)
Quarter: 2008Q4

REPORT INFORMATION
  Report Type: 
  Country: None (occurrence: None)
  Receive Date: 20081126
  Receipt Date: 20081024
  Transmission Date: 20090506
  Serious: No
  Sender: FDA-Public Use
  Company Number: US-ABBOTT-08P-163-0484694-00

PATIENT
  Age: 58 Year
  Sex: Female

DRUGS (4)
  1. SIMCOR [Suspect]
     Indication: DRUG USE FOR UNKNOWN INDICATION
     Dosage: 500/20MG
     Route: 048
     Dates: start: 20081021
  2. ACETYLSALICYLIC ACID SRT [Concomitant]
     Indication: DRUG USE FOR UNKNOWN INDICATION
     Route: 048
  3. UNKNOWN GERD MEDICATION [Concomitant]
     Indication: GASTROOESOPHAGEAL REFLUX DISEASE
     Dosage: NOT REPORTED
  4. UNKNOWN ANTIDEPRESSANT [Concomitant]
     Indication: ANTIDEPRESSANT THERAPY
     Dosage: NOT REPORTED

REACTIONS (5)
  - CARDIAC FLUTTER [None]
  - DIZZINESS [None]
  - HEADACHE [None]
  - MYALGIA [None]
  - PAIN [None]
